FAERS Safety Report 4551812-5 (Version None)
Quarter: 2005Q1

REPORT INFORMATION
  Report Type: 
  Country: None (occurrence: None)
  Receive Date: 20050111
  Receipt Date: 20041229
  Transmission Date: 20050727
  Serious: Yes (Other)
  Sender: FDA-Public Use
  Company Number: 2004-00876

PATIENT
  Age: 60 Year
  Sex: Male
  Weight: 78 kg

DRUGS (7)
  1. VELCADE [Suspect]
     Indication: MULTIPLE MYELOMA
     Dosage: 2.60 MG, 2/WEEK, INTRAVENOUS
     Route: 042
     Dates: start: 20040824
  2. NAVOBAN (TROPISETRON HYDROCHLORIDE) [Concomitant]
  3. ZOMETA [Concomitant]
  4. VALTREX [Concomitant]
  5. BACTRIM [Concomitant]
  6. DIFLUCAN [Concomitant]
  7. TESTOSTERONE [Concomitant]

REACTIONS (4)
  - ERYTHEMA MULTIFORME [None]
  - FATIGUE [None]
  - PAIN IN EXTREMITY [None]
  - PLEURAL EFFUSION [None]
